FAERS Safety Report 9867439 (Version 1)
Quarter: 2014Q1

REPORT INFORMATION
  Report Type: Report from Study
  Country: CA (occurrence: CA)
  Receive Date: 20140204
  Receipt Date: 20140204
  Transmission Date: 20141002
  Serious: Yes (Hospitalization)
  Sender: FDA-Public Use
  Company Number: CA-UCBSA-110901

PATIENT
  Age: 19 Year
  Sex: Male
  Weight: 51.3 kg

DRUGS (3)
  1. CIMZIA [Suspect]
     Indication: CROHN^S DISEASE
     Dosage: Q2 WKS X3
     Route: 058
     Dates: start: 20130717, end: 20130814
  2. CIMZIA [Suspect]
     Indication: CROHN^S DISEASE
     Route: 058
     Dates: start: 20130911
  3. PREDNISONE [Concomitant]
     Indication: CROHN^S DISEASE
     Dosage: VARIABLE, QD, PRN
     Route: 048

REACTIONS (1)
  - Anal abscess [Recovered/Resolved]
